FAERS Safety Report 23975975 (Version 1)
Quarter: 2024Q2

REPORT INFORMATION
  Report Type: Spontaneous
  Country: CH (occurrence: CH)
  Receive Date: 20240614
  Receipt Date: 20240614
  Transmission Date: 20240716
  Serious: Yes (Hospitalization)
  Sender: FDA-Public Use
  Company Number: None

PATIENT
  Age: 26 Year
  Sex: Male

DRUGS (1)
  1. LYRICA [Suspect]
     Active Substance: PREGABALIN
     Indication: Product used for unknown indication
     Dosage: UNK (INGESTION OF AN UNKNOWN AMOUNT OF LYRICA)
     Route: 048
     Dates: start: 20240502, end: 20240502

REACTIONS (5)
  - Altered state of consciousness [Recovered/Resolved]
  - Psychomotor retardation [Recovered/Resolved]
  - Electrocardiogram abnormal [Recovered/Resolved]
  - Suicide attempt [Recovered/Resolved]
  - Confusional state [Recovered/Resolved]

NARRATIVE: CASE EVENT DATE: 20240502
